FAERS Safety Report 11013781 (Version 2)
Quarter: 2015Q2

REPORT INFORMATION
  Report Type: Spontaneous
  Country: US (occurrence: US)
  Receive Date: 20150412
  Receipt Date: 20150526
  Transmission Date: 20150821
  Serious: No
  Sender: FDA-Public Use
  Company Number: US-JNJFOC-20141006417

PATIENT
  Sex: Male
  Weight: 92.53 kg

DRUGS (2)
  1. PANCREAZE [Suspect]
     Active Substance: PANCRELIPASE
     Indication: PRODUCT USED FOR UNKNOWN INDICATION
     Dosage: TOTAL DOSE 42000 UNITS 2 CAPSULES
     Route: 048
  2. PANCREAZE [Suspect]
     Active Substance: PANCRELIPASE
     Indication: PRODUCT USED FOR UNKNOWN INDICATION
     Dosage: 21000 UNITS DOSE THREE CAPSULES.
     Route: 048

REACTIONS (3)
  - Underdose [Unknown]
  - Nonspecific reaction [Recovering/Resolving]
  - Polyuria [Recovering/Resolving]
